FAERS Safety Report 8051266-0 (Version None)
Quarter: 2012Q1

REPORT INFORMATION
  Report Type: 
  Country: None (occurrence: None)
  Receive Date: 20120117
  Receipt Date: 20120104
  Transmission Date: 20120608
  Serious: Yes (Hospitalization, Other)
  Sender: FDA-Public Use
  Company Number: US-MUTUAL PHARMACEUTICAL COMPANY, INC.-CLHC20120005

PATIENT
  Age: 73 Year
  Sex: Female

DRUGS (2)
  1. CAFFEINE CITRATE [Concomitant]
     Indication: PRODUCT USED FOR UNKNOWN INDICATION
     Route: 065
  2. COLCHICINE [Suspect]
     Indication: FIBROMYALGIA
     Route: 042

REACTIONS (12)
  - CARDIOMYOPATHY ACUTE [None]
  - PRESYNCOPE [None]
  - ALANINE AMINOTRANSFERASE INCREASED [None]
  - ASPARTATE AMINOTRANSFERASE INCREASED [None]
  - VOMITING [None]
  - NEUROPATHY PERIPHERAL [None]
  - ASTHENIA [None]
  - ALOPECIA [None]
  - RHABDOMYOLYSIS [None]
  - PANCYTOPENIA [None]
  - DIARRHOEA [None]
  - RENAL FAILURE ACUTE [None]
